FAERS Safety Report 10218791 (Version 1)
Quarter: 2014Q2

REPORT INFORMATION
  Report Type: Spontaneous
  Country: AT (occurrence: AT)
  Receive Date: 20140605
  Receipt Date: 20140605
  Transmission Date: 20141212
  Serious: Yes (Other)
  Sender: FDA-Public Use
  Company Number: PHHY2014AT065734

PATIENT
  Age: 66 Year
  Sex: Male

DRUGS (1)
  1. AFINITOR [Suspect]
     Indication: RENAL CELL CARCINOMA
     Dosage: 10 MG, (1X1)
     Dates: start: 201209

REACTIONS (7)
  - Pleomorphic adenoma [Unknown]
  - Sleep disorder [Unknown]
  - Hyperlipidaemia [Recovering/Resolving]
  - Blood cholesterol increased [Unknown]
  - Blood triglycerides increased [Recovering/Resolving]
  - Fatigue [Unknown]
  - Neoplasm [Unknown]
